FAERS Safety Report 14967090 (Version 1)
Quarter: 2018Q2

REPORT INFORMATION
  Report Type: Report from Study
  Country: CN (occurrence: CN)
  Receive Date: 20180604
  Receipt Date: 20180604
  Transmission Date: 20180711
  Serious: Yes (Death, Other)
  Sender: FDA-Public Use
  Company Number: CN-CHEPLA-C20170786

PATIENT

DRUGS (7)
  1. CYTOSINE ARABINOSIDE [Suspect]
     Active Substance: CYTARABINE
     Indication: PROPHYLAXIS
     Dosage: SIX INTRATHECAL INJECTIONS OF 50 MG
     Route: 037
  2. DAUNORUBICIN [Suspect]
     Active Substance: DAUNORUBICIN
     Indication: ACUTE PROMYELOCYTIC LEUKAEMIA
     Dosage: 45 MG/MM2/D FOR 3-4 DAYS
     Route: 065
  3. DEXAMETHASONE. [Suspect]
     Active Substance: DEXAMETHASONE
     Indication: PROPHYLAXIS
     Dosage: SIX INTRATHECAL INJECTIONS OF 5 MG
     Route: 037
  4. ARSENIC TRIOXIDE (ATO) [Suspect]
     Active Substance: ARSENIC TRIOXIDE
     Indication: ACUTE PROMYELOCYTIC LEUKAEMIA
     Dosage: 10 MG/DAY
     Route: 042
  5. IDARUBICIN [Suspect]
     Active Substance: IDARUBICIN
     Indication: ACUTE PROMYELOCYTIC LEUKAEMIA
     Dosage: 8 MG/MM2/D FOR 3-4 DAYS
     Route: 065
  6. METHOTREXATE. [Suspect]
     Active Substance: METHOTREXATE
     Indication: PROPHYLAXIS
     Dosage: SIX INTRATHECAL INJECTIONS OF 10 MG
     Route: 037
  7. ALL-TRANS RETINOIC ACID (ATRA) [Suspect]
     Active Substance: TRETINOIN
     Indication: ACUTE PROMYELOCYTIC LEUKAEMIA
     Dosage: 25 MG/MM2/D
     Route: 048

REACTIONS (6)
  - Haemorrhage intracranial [Fatal]
  - Acute kidney injury [Fatal]
  - Type 2 diabetes mellitus [Unknown]
  - Infection [Fatal]
  - Pulmonary haemorrhage [Fatal]
  - Haemorrhage [Unknown]
